FAERS Safety Report 16909947 (Version 2)
Quarter: 2019Q4

REPORT INFORMATION
  Report Type: Spontaneous
  Country: US (occurrence: US)
  Receive Date: 20191011
  Receipt Date: 20191104
  Transmission Date: 20200122
  Serious: No
  Sender: FDA-Public Use
  Company Number: US-TEVA-2019-US-1114532

PATIENT
  Sex: Female

DRUGS (2)
  1. COPAXONE [Suspect]
     Active Substance: GLATIRAMER ACETATE
     Dosage: FORM STRENGTH: UNKNOWN
     Route: 065
  2. AUTOJECT INJECTOR DEVICE [Suspect]
     Active Substance: DEVICE
     Route: 065

REACTIONS (3)
  - Injection site pain [Unknown]
  - Needle issue [Unknown]
  - Injection site injury [Unknown]
